FAERS Safety Report 11679757 (Version 2)
Quarter: 2015Q4

REPORT INFORMATION
  Report Type: Spontaneous
  Country: US (occurrence: US)
  Receive Date: 20151027
  Receipt Date: 20151104
  Transmission Date: 20160304
  Serious: No
  Sender: FDA-Public Use
  Company Number: US-ELI_LILLY_AND_COMPANY-US200912000945

PATIENT
  Age: 73 Year
  Sex: Female

DRUGS (6)
  1. ATENOLOL. [Concomitant]
     Active Substance: ATENOLOL
     Indication: HEART RATE IRREGULAR
     Dosage: UNK, UNK
  2. FORTEO [Suspect]
     Active Substance: TERIPARATIDE
     Dosage: 20 UG, DAILY (1/D)
     Route: 065
     Dates: start: 20101101
  3. VITAMIN D [Concomitant]
     Active Substance: CHOLECALCIFEROL
     Dosage: 800 MG, UNK
  4. FORTEO [Suspect]
     Active Substance: TERIPARATIDE
     Indication: OSTEOPOROSIS
     Dosage: 20 UG, DAILY (1/D)
     Route: 065
     Dates: start: 20091101
  5. FORTEO [Suspect]
     Active Substance: TERIPARATIDE
     Dosage: 20 UG, DAILY (1/D)
     Route: 065
     Dates: start: 2009, end: 20101031
  6. CALCIUM [Concomitant]
     Active Substance: CALCIUM
     Dosage: 1100 MG, UNK

REACTIONS (12)
  - Heart rate abnormal [Recovering/Resolving]
  - Nervousness [Unknown]
  - Sleep disorder [Unknown]
  - Skin discomfort [Unknown]
  - Pain in extremity [Recovered/Resolved]
  - Palpitations [Not Recovered/Not Resolved]
  - Toothache [Unknown]
  - Nausea [Recovered/Resolved]
  - Heart rate increased [Recovering/Resolving]
  - Drug dose omission [Unknown]
  - Sciatica [Unknown]
  - Pain [Unknown]

NARRATIVE: CASE EVENT DATE: 201003
